FAERS Safety Report 6283291-4 (Version None)
Quarter: 2009Q3

REPORT INFORMATION
  Report Type: 
  Country: None (occurrence: None)
  Receive Date: 20090724
  Receipt Date: 20090713
  Transmission Date: 20100115
  Serious: Yes (Other)
  Sender: FDA-Public Use
  Company Number: GB-PFIZER INC-2009239382

PATIENT
  Age: 61 Year

DRUGS (1)
  1. DISOPYRAMIDE AND DISOPYRAMIDE PHOSPHATE [Suspect]
     Dosage: 250 MG, 2X/DAY

REACTIONS (1)
  - LETHARGY [None]
